FAERS Safety Report 21161228 (Version 2)
Quarter: 2022Q3

REPORT INFORMATION
  Report Type: Spontaneous
  Country: CN (occurrence: CN)
  Receive Date: 20220802
  Receipt Date: 20220803
  Transmission Date: 20221027
  Serious: Yes (Other)
  Sender: FDA-Public Use
  Company Number: CN-009507513-2208CHN000132

PATIENT
  Age: 70 Year
  Sex: Male

DRUGS (1)
  1. PEMBROLIZUMAB [Suspect]
     Active Substance: PEMBROLIZUMAB
     Indication: Oesophageal carcinoma
     Dosage: 100 MILLIGRAM, Q3W

REACTIONS (4)
  - Acute kidney injury [Recovering/Resolving]
  - Immune-mediated hyperthyroidism [Unknown]
  - Renal tubular injury [Unknown]
  - Underdose [Unknown]
